FAERS Safety Report 7440837-8 (Version None)
Quarter: 2011Q2

REPORT INFORMATION
  Report Type: 
  Country: None (occurrence: None)
  Receive Date: 20110427
  Receipt Date: 20110425
  Transmission Date: 20111010
  Serious: Yes (Hospitalization)
  Sender: FDA-Public Use
  Company Number: US-BRISTOL-MYERS SQUIBB COMPANY-15694524

PATIENT
  Age: 68 Year
  Sex: Female
  Weight: 70 kg

DRUGS (2)
  1. CARBOPLATIN [Suspect]
     Indication: NON-SMALL CELL LUNG CANCER
     Dosage: NO OF INF:4 LAST DOSE 460MG ON 07APR2011
     Route: 065
     Dates: start: 20110203
  2. PACLITAXEL [Suspect]
     Indication: NON-SMALL CELL LUNG CANCER
     Dosage: NO OF INF:3 LAST DOSE 290MG ON 07APR2011
     Route: 042
     Dates: start: 20110203

REACTIONS (1)
  - HYPOVOLAEMIA [None]
